FAERS Safety Report 4518708-6 (Version None)
Quarter: 2004Q4

REPORT INFORMATION
  Report Type: 
  Country: None (occurrence: None)
  Receive Date: 20041201
  Receipt Date: 20041115
  Transmission Date: 20050328
  Serious: Yes (Hospitalization, Disabling)
  Sender: FDA-Public Use
  Company Number: 9324

PATIENT
  Age: 65 Year
  Sex: Male

DRUGS (8)
  1. AMIODARONE [Suspect]
     Dosage: PO
     Route: 048
     Dates: start: 20040211, end: 20040316
  2. ACETYLSALICYLIC ACID [Concomitant]
  3. RAMIPRIL [Concomitant]
  4. OMEPRAZOLE [Concomitant]
  5. CO-DYDRAMOL [Concomitant]
  6. ALBUTEROL [Concomitant]
  7. DILTIAZEM [Concomitant]
  8. BECLOMETHASONE DIPRORIONATE [Concomitant]

REACTIONS (1)
  - HYPERTHYROIDISM [None]
